FAERS Safety Report 14878424 (Version 2)
Quarter: 2019Q2

REPORT INFORMATION
  Report Type: Spontaneous
  Country: US (occurrence: US)
  Receive Date: 20180511
  Receipt Date: 20190418
  Transmission Date: 20190711
  Serious: No
  Sender: FDA-Public Use
  Company Number: US-BAUSCH-BL-2018-006272

PATIENT
  Age: 65 Year
  Sex: Female

DRUGS (1)
  1. LATANOPROST. [Suspect]
     Active Substance: LATANOPROST
     Indication: OPEN ANGLE GLAUCOMA
     Dosage: STOP DATE: ON AN UNKNOWN DATE IN FEB/2018 OR MAR/2018
     Route: 047
     Dates: start: 201606, end: 2018

REACTIONS (3)
  - Eye pain [Recovered/Resolved]
  - Product quality issue [Unknown]
  - Eye irritation [Recovered/Resolved]
